FAERS Safety Report 19658916 (Version 1)
Quarter: 2021Q3

REPORT INFORMATION
  Report Type: Other
  Country: US (occurrence: US)
  Receive Date: 20210805
  Receipt Date: 20210805
  Transmission Date: 20211014
  Serious: Yes (Hospitalization)
  Sender: FDA-Public Use
  Company Number: US-ROCHE-2880427

PATIENT
  Sex: Female

DRUGS (1)
  1. XELODA [Suspect]
     Active Substance: CAPECITABINE
     Indication: ANAL CANCER
     Dosage: TAKE 3 TABLETS BY MOUTH TWICE A DAY MONDAY THROUGH FRIDAY
     Route: 048

REACTIONS (6)
  - Toxicity to various agents [Unknown]
  - COVID-19 [Unknown]
  - Weight decreased [Unknown]
  - Off label use [Unknown]
  - Nausea [Unknown]
  - Haematotoxicity [Unknown]
